FAERS Safety Report 6508967-2 (Version None)
Quarter: 2009Q4

REPORT INFORMATION
  Report Type: 
  Country: None (occurrence: None)
  Receive Date: 20091221
  Receipt Date: 20090910
  Transmission Date: 20100525
  Serious: No
  Sender: FDA-Public Use
  Company Number: US-ASTRAZENECA-2009SE12442

PATIENT
  Age: 47 Year
  Sex: Male
  Weight: 111.1 kg

DRUGS (1)
  1. CRESTOR [Suspect]
     Route: 048
     Dates: start: 20070101, end: 20090701

REACTIONS (3)
  - BACK PAIN [None]
  - CHEST PAIN [None]
  - MUSCULOSKELETAL PAIN [None]
